FAERS Safety Report 22596423 (Version 1)
Quarter: 2023Q2

REPORT INFORMATION
  Report Type: Spontaneous
  Country: DK (occurrence: DK)
  Receive Date: 20230613
  Receipt Date: 20230613
  Transmission Date: 20230722
  Serious: Yes (Hospitalization)
  Sender: FDA-Public Use
  Company Number: DK-ANIPHARMA-2023-DK-000014

PATIENT
  Age: 70 Year
  Sex: Female

DRUGS (8)
  1. CANDESARTAN CILEXETIL [Suspect]
     Active Substance: CANDESARTAN CILEXETIL
     Indication: Hypertension
     Dosage: 8 MG DAILY
     Route: 048
     Dates: start: 20220330, end: 20230110
  2. ALBUTEROL SULFATE [Concomitant]
     Active Substance: ALBUTEROL SULFATE
     Route: 065
     Dates: start: 20190404
  3. VAGIFEM [Concomitant]
     Active Substance: ESTRADIOL
     Dates: start: 20150731
  4. PROTOPIC [Concomitant]
     Active Substance: TACROLIMUS
     Route: 065
     Dates: start: 20181009
  5. FORMO [Concomitant]
     Route: 065
     Dates: start: 20220325
  6. LEVOCETIRIZINE DIHYDROCHLORIDE [Concomitant]
     Active Substance: LEVOCETIRIZINE DIHYDROCHLORIDE
     Route: 065
     Dates: start: 20130920
  7. LOCOID [Concomitant]
     Active Substance: HYDROCORTISONE BUTYRATE
     Route: 065
     Dates: start: 20181009
  8. FLUTICASONE FUROATE [Concomitant]
     Active Substance: FLUTICASONE FUROATE
     Route: 065
     Dates: start: 20190507

REACTIONS (4)
  - Abdominal pain [Recovering/Resolving]
  - Malaise [Recovering/Resolving]
  - Colitis microscopic [Recovering/Resolving]
  - Diarrhoea [Recovering/Resolving]

NARRATIVE: CASE EVENT DATE: 20221201
